FAERS Safety Report 7290114-3 (Version None)
Quarter: 2011Q1

REPORT INFORMATION
  Report Type: 
  Country: None (occurrence: None)
  Receive Date: 20110214
  Receipt Date: 20110208
  Transmission Date: 20110831
  Serious: Yes (Hospitalization)
  Sender: FDA-Public Use
  Company Number: FR-BRISTOL-MYERS SQUIBB COMPANY-15481880

PATIENT
  Age: 1 Year

DRUGS (4)
  1. RETROVIR [Suspect]
     Dosage: TRANSPLACENTALLY (1 DF = 200MG/20ML,SOLE INJECTION), UNSPECIFIED ROUTE DURING DELIVERY
     Route: 064
     Dates: start: 20090703, end: 20090703
  2. ZERIT [Suspect]
     Route: 064
  3. REYATAZ [Suspect]
     Route: 064
  4. EPIVIR [Suspect]
     Route: 064

REACTIONS (2)
  - NEOPLASM [None]
  - RETINOBLASTOMA [None]
